FAERS Safety Report 19716189 (Version 2)
Quarter: 2021Q3

REPORT INFORMATION
  Report Type: Spontaneous
  Country: JP (occurrence: JP)
  Receive Date: 20210819
  Receipt Date: 20210914
  Transmission Date: 20211014
  Serious: Yes (Hospitalization)
  Sender: FDA-Public Use
  Company Number: JP-JNJFOC-20210834719

PATIENT
  Age: 41 Year
  Sex: Female
  Weight: 47 kg

DRUGS (6)
  1. CONCERTA [Suspect]
     Active Substance: METHYLPHENIDATE HYDROCHLORIDE
     Route: 048
     Dates: start: 20200814, end: 20200910
  2. DEPAKENE [Suspect]
     Active Substance: VALPROIC ACID
     Indication: IMPULSIVE BEHAVIOUR
     Dosage: DOSE UNKNOWN
     Route: 048
     Dates: end: 202105
  3. CONCERTA [Suspect]
     Active Substance: METHYLPHENIDATE HYDROCHLORIDE
     Route: 048
     Dates: start: 20200911, end: 20201203
  4. CONCERTA [Suspect]
     Active Substance: METHYLPHENIDATE HYDROCHLORIDE
     Indication: ATTENTION DEFICIT HYPERACTIVITY DISORDER
     Route: 048
     Dates: start: 20200727, end: 20200813
  5. CONCERTA [Suspect]
     Active Substance: METHYLPHENIDATE HYDROCHLORIDE
     Dosage: DOSE UNKNOWN
     Route: 048
     Dates: start: 20201204, end: 20210717
  6. RISPERIDONE. [Suspect]
     Active Substance: RISPERIDONE
     Indication: IMPULSIVE BEHAVIOUR
     Dosage: DOSE UNKNOWN
     Route: 048
     Dates: end: 202105

REACTIONS (1)
  - Suicide attempt [Recovering/Resolving]

NARRATIVE: CASE EVENT DATE: 20210717
